FAERS Safety Report 6557582-3 (Version None)
Quarter: 2010Q1

REPORT INFORMATION
  Report Type: 
  Country: None (occurrence: None)
  Receive Date: 20100129
  Receipt Date: 20100120
  Transmission Date: 20100710
  Serious: Yes (Hospitalization)
  Sender: FDA-Public Use
  Company Number: CA-JNJFOC-20090600547

PATIENT
  Sex: Female
  Weight: 72 kg

DRUGS (23)
  1. REMICADE [Suspect]
     Indication: PSORIATIC ARTHROPATHY
     Route: 042
  2. REMICADE [Suspect]
     Route: 042
  3. METHOTREXATE [Concomitant]
  4. RATIO-MELOXICAM [Concomitant]
  5. FOLIC ACID [Concomitant]
  6. PENNSAID [Concomitant]
  7. METFORMIN [Concomitant]
  8. NOVO-GLICLAZIDE [Concomitant]
  9. REACTINE [Concomitant]
  10. NEXIUM [Concomitant]
  11. ALEXA [Concomitant]
  12. FOSAMAX [Concomitant]
  13. GEN-CITALOPRAM [Concomitant]
  14. SINGULAIR [Concomitant]
  15. CALCIUM [Concomitant]
  16. SYNTHROID [Concomitant]
  17. ALBUTEROL [Concomitant]
  18. MAGNESIUM [Concomitant]
  19. VITAMIN D [Concomitant]
  20. CRESTOR [Concomitant]
  21. LYRICA [Concomitant]
  22. PREMARIN [Concomitant]
  23. APO-AMITRIPTYLINE [Concomitant]

REACTIONS (3)
  - DIARRHOEA [None]
  - MALAISE [None]
  - VOMITING [None]
